FAERS Safety Report 6322498-4 (Version None)
Quarter: 2009Q3

REPORT INFORMATION
  Report Type: 
  Country: None (occurrence: None)
  Receive Date: 20090824
  Receipt Date: 20090304
  Transmission Date: 20100115
  Serious: No
  Sender: FDA-Public Use
  Company Number: US-ABBOTT-09P-163-0559417-00

PATIENT
  Sex: Female
  Weight: 63.56 kg

DRUGS (4)
  1. NIASPAN [Suspect]
     Indication: BLOOD CHOLESTEROL INCREASED
     Dosage: 1 PILL
     Route: 048
     Dates: start: 20070101, end: 20090201
  2. NIASPAN [Suspect]
     Dosage: 1 PILL
     Route: 048
     Dates: start: 20090201, end: 20090201
  3. NIASPAN [Suspect]
     Dosage: 1 PILL
     Route: 048
     Dates: start: 20090201
  4. UNNAMED BLOOD PRESSURE MEDICATION [Concomitant]
     Indication: HYPERTENSION

REACTIONS (2)
  - FLATULENCE [None]
  - HEADACHE [None]
